FAERS Safety Report 18565653 (Version 1)
Quarter: 2020Q4

REPORT INFORMATION
  Report Type: Spontaneous
  Country: PL (occurrence: PL)
  Receive Date: 20201201
  Receipt Date: 20201201
  Transmission Date: 20210114
  Serious: Yes (Other)
  Sender: FDA-Public Use
  Company Number: NVSC2020PL314541

PATIENT
  Age: 19 Year
  Sex: Female

DRUGS (3)
  1. CLONAZEPAM. [Suspect]
     Active Substance: CLONAZEPAM
     Indication: ACCIDENTAL POISONING
     Dosage: 3 DF
     Route: 048
     Dates: start: 20200212, end: 20200212
  2. TRAMAL RETARD [Suspect]
     Active Substance: TRAMADOL
     Indication: ACCIDENTAL POISONING
     Dosage: 4 DF
     Route: 048
     Dates: start: 20200212, end: 20200212
  3. OXYCODONE [Suspect]
     Active Substance: OXYCODONE
     Indication: ACCIDENTAL POISONING
     Dosage: 40 MG
     Route: 048
     Dates: start: 20200212, end: 20200212

REACTIONS (2)
  - Miosis [Recovered/Resolved]
  - Coma [Recovered/Resolved]

NARRATIVE: CASE EVENT DATE: 20200212
